FAERS Safety Report 9943319 (Version 9)
Quarter: 2014Q4

REPORT INFORMATION
  Report Type: Report from Study
  Country: MX (occurrence: MX)
  Receive Date: 20140303
  Receipt Date: 20141031
  Transmission Date: 20150529
  Serious: Yes (Death, Hospitalization, Disabling, Other)
  Sender: FDA-Public Use
  Company Number: MX-PFIZER INC-2014041548

PATIENT
  Age: 56 Year
  Sex: Male
  Weight: 81.2 kg

DRUGS (14)
  1. TOFACITINIB CITRATE [Suspect]
     Active Substance: TOFACITINIB CITRATE
     Indication: PSORIASIS
     Dosage: 10 MG, 2X/DAY
     Route: 048
     Dates: start: 20120229, end: 20140130
  2. OMEPRAZOLE. [Concomitant]
     Active Substance: OMEPRAZOLE
     Indication: PROPHYLAXIS
     Dosage: UNK
     Dates: start: 20140130, end: 20140206
  3. DIGOXIN. [Concomitant]
     Active Substance: DIGOXIN
     Indication: ACUTE CORONARY SYNDROME
     Dosage: UNK
     Dates: start: 20140206
  4. METOCLOPRAMIDE. [Concomitant]
     Active Substance: METOCLOPRAMIDE
     Indication: PROPHYLAXIS
     Dosage: UNK
     Dates: start: 20140130, end: 20140206
  5. AMIODARONE [Concomitant]
     Active Substance: AMIODARONE
     Indication: ACUTE CORONARY SYNDROME
     Dosage: UNK
     Dates: start: 20140130, end: 20140131
  6. ENALAPRIL [Concomitant]
     Active Substance: ENALAPRIL
     Dosage: UNK
     Dates: start: 20140206, end: 20140208
  7. LOSARTAN [Concomitant]
     Active Substance: LOSARTAN
     Indication: HYPERTENSION
     Dosage: UNK
     Dates: start: 20131126, end: 20140130
  8. BEZAFIBRATE [Concomitant]
     Active Substance: BEZAFIBRATE
     Indication: HYPERLIPIDAEMIA
     Dosage: UNK
     Dates: start: 20130605, end: 20140130
  9. ACETYLSALICYLIC ACID [Concomitant]
     Active Substance: ASPIRIN
     Indication: ACUTE CORONARY SYNDROME
     Dosage: UNK
     Dates: start: 20140130
  10. METFORMIN [Concomitant]
     Active Substance: METFORMIN HYDROCHLORIDE
     Indication: TYPE 2 DIABETES MELLITUS
     Dosage: UNK, 1X/DAY
     Dates: start: 20120524, end: 20140130
  11. CLOPIDOGREL [Concomitant]
     Active Substance: CLOPIDOGREL BISULFATE
     Indication: ACUTE CORONARY SYNDROME
     Dosage: UNK
     Dates: start: 20140130
  12. PRAVASTATIN [Concomitant]
     Active Substance: PRAVASTATIN\PRAVASTATIN SODIUM
     Indication: ACUTE CORONARY SYNDROME
     Dosage: UNK
     Dates: start: 20140130
  13. METOPROLOL [Concomitant]
     Active Substance: METOPROLOL
     Dosage: UNK
     Dates: start: 20140206, end: 20140208
  14. DICLOXACILLIN [Concomitant]
     Active Substance: DICLOXACILLIN
     Indication: PROPHYLAXIS
     Dosage: UNK
     Dates: start: 20140206, end: 20140208

REACTIONS (3)
  - Cerebrovascular accident [Not Recovered/Not Resolved]
  - Acute respiratory distress syndrome [Fatal]
  - Pneumonia [Fatal]

NARRATIVE: CASE EVENT DATE: 20140208
